FAERS Safety Report 16909376 (Version 1)
Quarter: 2019Q4

REPORT INFORMATION
  Report Type: Spontaneous
  Country: US (occurrence: US)
  Receive Date: 20190820
  Receipt Date: 20190820
  Transmission Date: 20200122
  Serious: No
  Sender: FDA-Public Use
  Company Number: None

PATIENT
  Age: 84 Year
  Sex: Female
  Weight: 45.36 kg

DRUGS (7)
  1. GABAPENTIN. [Concomitant]
     Active Substance: GABAPENTIN
  2. ECOTRIN [Concomitant]
     Active Substance: ASPIRIN
  3. LEVOTHYROXINE. [Concomitant]
     Active Substance: LEVOTHYROXINE
  4. POSTURE D [Concomitant]
  5. VITAMIN E [Concomitant]
     Active Substance: .ALPHA.-TOCOPHEROL
  6. PROLIA [Suspect]
     Active Substance: DENOSUMAB
     Indication: OSTEOPOROSIS
     Dosage: ?          QUANTITY:1 DF DOSAGE FORM;OTHER FREQUENCY:EVERY 6 MONTHS;?
     Dates: start: 2017, end: 20190730
  7. COSAMIN ASU [Concomitant]

REACTIONS (9)
  - Rhinorrhoea [None]
  - Pyrexia [None]
  - Oropharyngeal pain [None]
  - Headache [None]
  - Musculoskeletal pain [None]
  - Arthralgia [None]
  - Malaise [None]
  - Decreased appetite [None]
  - Cough [None]

NARRATIVE: CASE EVENT DATE: 20190730
